FAERS Safety Report 4755372-5 (Version None)
Quarter: 2005Q3

REPORT INFORMATION
  Report Type: 
  Country: None (occurrence: None)
  Receive Date: 20050826
  Receipt Date: 20050127
  Transmission Date: 20060218
  Serious: Yes (Other)
  Sender: FDA-Public Use
  Company Number: USA-2002-0000672

PATIENT
  Age: 43 Year
  Sex: Male

DRUGS (22)
  1. OXYCONTIN [Suspect]
     Indication: PAIN
     Dosage: 20 MG, SEE TEXT
     Dates: start: 20000101, end: 20010728
  2. ALPRAZOLAM [Suspect]
     Dosage: 1 MG, QID, ORAL
     Route: 048
     Dates: start: 20000101, end: 20010728
  3. LORTAB [Suspect]
     Dosage: 7.5 MG, SEE TEXT
     Dates: start: 19800101, end: 20010801
  4. DESYREL [Concomitant]
  5. DILANTIN [Concomitant]
  6. RELAFEN [Concomitant]
  7. SKELAXIN [Concomitant]
  8. PRILOSEC [Concomitant]
  9. CEFTIN [Concomitant]
  10. ALLEGRA [Concomitant]
  11. NASACORT AQ [Concomitant]
  12. LOTENSIN [Concomitant]
  13. AMOXICILLIN TRIHYDRATE [Concomitant]
  14. ULTRAVATE [Concomitant]
  15. CATAFLAM [Concomitant]
  16. LOTREL [Concomitant]
  17. DURATUSS G [Concomitant]
  18. ATUSS DM [Concomitant]
  19. XANAX [Concomitant]
  20. ACETAMINOPHEN AND OXYCODONE HCL [Concomitant]
  21. PSORCON [Concomitant]
  22. ZOLOFT [Concomitant]

REACTIONS (38)
  - ACUTE SINUSITIS [None]
  - AGITATION [None]
  - AMNESIA [None]
  - ANXIETY [None]
  - BURNING SENSATION [None]
  - COUGH [None]
  - DEPRESSED MOOD [None]
  - DRUG ABUSER [None]
  - DRUG DEPENDENCE [None]
  - DRUG INEFFECTIVE [None]
  - DRUG WITHDRAWAL SYNDROME [None]
  - DRY SKIN [None]
  - DYSPHONIA [None]
  - ECZEMA [None]
  - ESSENTIAL HYPERTENSION [None]
  - HEADACHE [None]
  - HYPERHIDROSIS [None]
  - HYPOAESTHESIA [None]
  - INSOMNIA [None]
  - LARYNGITIS [None]
  - LISTLESS [None]
  - MIDDLE EAR EFFUSION [None]
  - NASOPHARYNGITIS [None]
  - NAUSEA [None]
  - PAIN [None]
  - PAIN IN EXTREMITY [None]
  - PHOTOPHOBIA [None]
  - PRURITUS [None]
  - PSORIASIS [None]
  - RHINITIS [None]
  - RHINITIS SEASONAL [None]
  - RHINORRHOEA [None]
  - SINUS TACHYCARDIA [None]
  - SNEEZING [None]
  - SWELLING FACE [None]
  - TENDERNESS [None]
  - TOOTHACHE [None]
  - TREMOR [None]
